FAERS Safety Report 20036111 (Version 2)
Quarter: 2021Q4

REPORT INFORMATION
  Report Type: Other
  Country: JP (occurrence: JP)
  Receive Date: 20211105
  Receipt Date: 20211111
  Transmission Date: 20220303
  Serious: No
  Sender: FDA-Public Use
  Company Number: JP-CHUGAI-2021024747

PATIENT
  Age: 10 Year
  Sex: Male

DRUGS (4)
  1. AVASTIN [Suspect]
     Active Substance: BEVACIZUMAB
     Indication: Ewing^s sarcoma
     Route: 041
  2. AVASTIN [Suspect]
     Active Substance: BEVACIZUMAB
     Indication: Metastases to central nervous system
  3. GEMCITABINE [Concomitant]
     Active Substance: GEMCITABINE
     Indication: Ewing^s sarcoma
     Route: 041
  4. DOCETAXEL [Concomitant]
     Active Substance: DOCETAXEL
     Indication: Ewing^s sarcoma
     Route: 041

REACTIONS (2)
  - Off label use [Unknown]
  - No adverse event [Unknown]
